FAERS Safety Report 6361390-6 (Version None)
Quarter: 2009Q3

REPORT INFORMATION
  Report Type: 
  Country: None (occurrence: None)
  Receive Date: 20090918
  Receipt Date: 20090908
  Transmission Date: 20100115
  Serious: Yes (Other)
  Sender: FDA-Public Use
  Company Number: TR-ELI_LILLY_AND_COMPANY-TR200909001583

PATIENT
  Sex: Male
  Weight: 25 kg

DRUGS (4)
  1. STRATTERA [Suspect]
     Indication: ATTENTION DEFICIT/HYPERACTIVITY DISORDER
     Dosage: 10 MG, DAILY (1/D)
     Route: 048
     Dates: start: 20090511, end: 20090501
  2. STRATTERA [Suspect]
     Dosage: 18 MG, DAILY (1/D)
     Route: 048
     Dates: start: 20090501, end: 20090501
  3. STRATTERA [Suspect]
     Dosage: 25 MG, DAILY (1/D)
     Route: 048
     Dates: start: 20090501, end: 20090501
  4. STRATTERA [Suspect]
     Dosage: 10 MG, DAILY (1/D)
     Route: 048
     Dates: start: 20090601, end: 20090814

REACTIONS (5)
  - ABDOMINAL PAIN [None]
  - FALL [None]
  - FATIGUE [None]
  - HEADACHE [None]
  - SOMNOLENCE [None]
